FAERS Safety Report 20613860 (Version 5)
Quarter: 2023Q1

REPORT INFORMATION
  Report Type: Spontaneous
  Country: US (occurrence: US)
  Receive Date: 20220319
  Receipt Date: 20230103
  Transmission Date: 20230417
  Serious: Yes (Other)
  Sender: FDA-Public Use
  Company Number: US-SA-SAC20210212001047

PATIENT
  Age: 56 Year
  Sex: Male
  Weight: 141.9 kg

DRUGS (1)
  1. CAPRELSA [Suspect]
     Active Substance: VANDETANIB
     Indication: Thyroid cancer
     Dosage: 300 MG, QD
     Route: 048
     Dates: start: 20160425

REACTIONS (7)
  - Carcinoembryonic antigen increased [Unknown]
  - COVID-19 [Recovered/Resolved]
  - Blood calcitonin abnormal [Unknown]
  - Constipation [Unknown]
  - Hypercoagulation [Recovered/Resolved]
  - Blood calcitonin decreased [Unknown]
  - Diarrhoea [Unknown]
